FAERS Safety Report 20862131 (Version 1)
Quarter: 2022Q2

REPORT INFORMATION
  Report Type: Spontaneous
  Country: CN (occurrence: CN)
  Receive Date: 20220523
  Receipt Date: 20220523
  Transmission Date: 20220721
  Serious: Yes (Hospitalization, Other)
  Sender: FDA-Public Use
  Company Number: CN-PFIZER INC-202200708403

PATIENT
  Age: 50 Year
  Sex: Female
  Weight: 60 kg

DRUGS (2)
  1. EPIRUBICIN HYDROCHLORIDE [Suspect]
     Active Substance: EPIRUBICIN HYDROCHLORIDE
     Indication: Neoplasm
     Dosage: 130 MG, 1X/DAY
     Route: 041
     Dates: start: 20220412, end: 20220412
  2. CYCLOPHOSPHAMIDE [Suspect]
     Active Substance: CYCLOPHOSPHAMIDE
     Indication: Neoplasm
     Dosage: 1 G, 1X/DAY
     Route: 041
     Dates: start: 20220412, end: 20220412

REACTIONS (6)
  - Myelosuppression [Recovering/Resolving]
  - Pyelonephritis [Recovering/Resolving]
  - Bacteraemia [Recovering/Resolving]
  - Hyponatraemia [Recovering/Resolving]
  - Hepatic function abnormal [Recovering/Resolving]
  - Hypoproteinaemia [Recovering/Resolving]

NARRATIVE: CASE EVENT DATE: 20220421
